FAERS Safety Report 25849905 (Version 1)
Quarter: 2025Q3

REPORT INFORMATION
  Report Type: Spontaneous
  Country: US (occurrence: US)
  Receive Date: 20250926
  Receipt Date: 20250926
  Transmission Date: 20251021
  Serious: Yes (Hospitalization, Other)
  Sender: VELOXIS PHARMACEUTICALS
  Company Number: US-VELOXIS PHARMACEUTICALS, INC.-2025-VEL-00480

PATIENT
  Sex: Male

DRUGS (2)
  1. ENVARSUS XR [Suspect]
     Active Substance: TACROLIMUS
     Indication: Renal transplant
     Route: 065
  2. ENVARSUS XR [Suspect]
     Active Substance: TACROLIMUS
     Route: 065

REACTIONS (12)
  - Myocardial injury [Unknown]
  - Cardiac failure [Unknown]
  - Dyspnoea [Unknown]
  - Dizziness [Unknown]
  - Full blood count decreased [Unknown]
  - Arrhythmia [Unknown]
  - COVID-19 [Unknown]
  - Chest pain [Unknown]
  - Joint stiffness [Unknown]
  - Vertigo [Unknown]
  - Cervicogenic headache [Unknown]
  - Sleep deficit [Unknown]
